FAERS Safety Report 4652661-X (Version None)
Quarter: 2005Q2

REPORT INFORMATION
  Report Type: 
  Country: None (occurrence: None)
  Receive Date: 20050502
  Receipt Date: 20050420
  Transmission Date: 20051028
  Serious: Yes (Death)
  Sender: FDA-Public Use
  Company Number: 2005036841

PATIENT
  Age: 59 Year
  Sex: Male

DRUGS (10)
  1. ADRIAMYCIN PFS [Suspect]
     Indication: MULTIPLE MYELOMA
     Dosage: 15 MG, INTRAVENOUS
     Route: 042
     Dates: start: 20040903, end: 20041113
  2. ADRIAMYCIN PFS [Suspect]
     Indication: MULTIPLE MYELOMA
     Dosage: 15 MG, INTRAVENOUS
     Route: 042
     Dates: start: 20050112, end: 20050115
  3. VINCRISTINE SULFATE [Suspect]
     Indication: MULTIPLE MYELOMA
     Dosage: 0.4 MG, INTRAVENOUS
     Route: 042
     Dates: start: 20040903, end: 20041113
  4. VINCRISTINE SULFATE [Suspect]
     Indication: MULTIPLE MYELOMA
     Dosage: 0.4 MG, INTRAVENOUS
     Route: 042
     Dates: start: 20050112, end: 20050115
  5. DEXAMETHASONE [Suspect]
     Indication: MULTIPLE MYELOMA
     Dosage: 40 MG, ORAL
     Route: 048
     Dates: start: 20040903, end: 20041113
  6. DEXAMETHASONE [Suspect]
     Indication: MULTIPLE MYELOMA
     Dosage: 40 MG, ORAL
     Route: 048
     Dates: start: 20050112, end: 20050115
  7. ENALAPRIL MALEATE [Concomitant]
  8. BACTRIM [Concomitant]
  9. FAMOTIDINE [Concomitant]
  10. FUROSEMIDE [Concomitant]

REACTIONS (15)
  - ACUTE RESPIRATORY FAILURE [None]
  - BACK PAIN [None]
  - BLOOD PRESSURE DECREASED [None]
  - BLOOD PRESSURE INCREASED [None]
  - CARDIAC FAILURE ACUTE [None]
  - CARDIOMEGALY [None]
  - DISSEMINATED INTRAVASCULAR COAGULATION [None]
  - DYSPNOEA [None]
  - IMMUNODEFICIENCY [None]
  - INTERSTITIAL LUNG DISEASE [None]
  - LOSS OF CONSCIOUSNESS [None]
  - OPPORTUNISTIC INFECTION [None]
  - PNEUMONIA BACTERIAL [None]
  - PULMONARY CONGESTION [None]
  - RENAL FAILURE ACUTE [None]
